FAERS Safety Report 9370947 (Version 3)
Quarter: 2013Q3

REPORT INFORMATION
  Report Type: Spontaneous
  Country: US (occurrence: US)
  Receive Date: 20130627
  Receipt Date: 20130925
  Transmission Date: 20140515
  Serious: Yes (Other)
  Sender: FDA-Public Use
  Company Number: US-ROCHE-1241555

PATIENT
  Age: 64 Year
  Sex: Female

DRUGS (6)
  1. LUCENTIS [Suspect]
     Indication: AGE-RELATED MACULAR DEGENERATION
     Dosage: 0.5 MG INTRAOCULAR INJECTION IN ONE EYE
     Route: 050
     Dates: start: 20130614
  2. ZOFRAN [Concomitant]
     Indication: NAUSEA
  3. LISINOPRIL [Concomitant]
     Indication: BLOOD PRESSURE
     Route: 065
  4. AMBIEN [Concomitant]
  5. XANAX [Concomitant]
     Route: 065
  6. MOBIC [Concomitant]
     Indication: ARTHRITIS

REACTIONS (7)
  - Vitritis [Recovered/Resolved]
  - Pain [Unknown]
  - Vision blurred [Unknown]
  - Vitreous floaters [Recovering/Resolving]
  - Visual acuity reduced [Recovering/Resolving]
  - Non-infectious endophthalmitis [Unknown]
  - Product quality issue [Unknown]
